FAERS Safety Report 9693189 (Version 3)
Quarter: 2013Q4

REPORT INFORMATION
  Report Type: Spontaneous
  Country: JP (occurrence: JP)
  Receive Date: 20131118
  Receipt Date: 20131210
  Transmission Date: 20140711
  Serious: Yes (Hospitalization)
  Sender: FDA-Public Use
  Company Number: JP-TAKEDA-2013TUS002281

PATIENT
  Sex: 0

DRUGS (8)
  1. FEBURIC [Suspect]
     Indication: HYPERURICAEMIA
     Dosage: 10 MG, QD
     Route: 048
     Dates: start: 20130727, end: 20131030
  2. IMURAN /00001501/ [Interacting]
     Indication: MICROSCOPIC POLYANGIITIS
     Dosage: 100 MG, QD
     Route: 048
     Dates: start: 20090805, end: 20131030
  3. VICTOZA [Concomitant]
     Indication: DIABETES MELLITUS
     Dosage: 0.6 MG, QD
     Route: 058
     Dates: start: 20130723
  4. RABEPRAZOLE SODIUM [Concomitant]
     Indication: GASTROOESOPHAGEAL REFLUX DISEASE
     Dosage: 10 MG, QD
     Route: 048
  5. PREDONINE                          /00016201/ [Concomitant]
     Indication: MICROSCOPIC POLYANGIITIS
     Dosage: 5 MG, QD
     Route: 048
  6. ASPIRIN [Concomitant]
     Indication: THROMBOSIS PROPHYLAXIS
     Dosage: 100 MG, QD
     Route: 048
  7. SULFAMETHOXAZOLE/TRIMETHOPRIM [Concomitant]
     Dosage: 0.5 DF, QD
     Route: 048
  8. DAIKENTYUTO [Concomitant]
     Dosage: 7.5 G, QD
     Route: 048

REACTIONS (5)
  - Drug interaction [Recovering/Resolving]
  - Anaemia [Recovering/Resolving]
  - White blood cell count decreased [Recovering/Resolving]
  - Palpitations [Recovering/Resolving]
  - Dyspnoea [Recovering/Resolving]
